FAERS Safety Report 10046886 (Version 1)
Quarter: 2014Q1

REPORT INFORMATION
  Report Type: Report from Study
  Country: US (occurrence: US)
  Receive Date: 20140331
  Receipt Date: 20140331
  Transmission Date: 20141002
  Serious: Yes (Hospitalization, Other)
  Sender: FDA-Public Use
  Company Number: PHEH2014US006087

PATIENT
  Age: 27 Year
  Sex: Male
  Weight: 79 kg

DRUGS (1)
  1. TOBI PODHALER [Suspect]
     Indication: CYSTIC FIBROSIS
     Dosage: 112 MG, BID
     Route: 055
     Dates: start: 201306

REACTIONS (6)
  - Condition aggravated [Unknown]
  - Cystic fibrosis [Unknown]
  - Muscle spasms [Unknown]
  - Throat irritation [Unknown]
  - Aphonia [Unknown]
  - Cough [Unknown]
